FAERS Safety Report 9279145 (Version 2)
Quarter: 2013Q3

REPORT INFORMATION
  Report Type: Report from Study
  Country: US (occurrence: US)
  Receive Date: 20130508
  Receipt Date: 20130926
  Transmission Date: 20140515
  Serious: Yes (Disabling, Other)
  Sender: FDA-Public Use
  Company Number: US-EISAI INC-E2020-12301-SOL-US

PATIENT
  Sex: Male
  Weight: 109 kg

DRUGS (4)
  1. ARICEPT [Suspect]
     Route: 048
  2. VIAGRA [Suspect]
     Indication: ERECTILE DYSFUNCTION
     Route: 048
     Dates: start: 2013
  3. DEPAKOTE [Concomitant]
     Indication: CONVULSION
     Route: 048
  4. DEPAKOTE [Concomitant]
     Indication: BIPOLAR DISORDER

REACTIONS (6)
  - Coma [Unknown]
  - Brain oedema [Unknown]
  - Subdural haematoma [Unknown]
  - Road traffic accident [Unknown]
  - Amnesia [Unknown]
  - Blood testosterone decreased [Unknown]
